FAERS Safety Report 11634078 (Version 1)
Quarter: 2015Q4

REPORT INFORMATION
  Report Type: Spontaneous
  Country: US (occurrence: US)
  Receive Date: 20151015
  Receipt Date: 20151015
  Transmission Date: 20160304
  Serious: No
  Sender: FDA-Public Use
  Company Number: US-GE HEALTHCARE MEDICAL DIAGNOSTICS-TTSC-PR-1507S-0006

PATIENT
  Age: 46 Year
  Sex: Female

DRUGS (2)
  1. TECHNETIUM TC99M TSC [Suspect]
     Active Substance: TECHNETIUM TC-99M SULFUR COLLOID
     Indication: PRODUCT USED FOR UNKNOWN INDICATION
     Route: 048
     Dates: start: 20140910
  2. TECHNETIUM TC99M TSC [Suspect]
     Active Substance: TECHNETIUM TC-99M SULFUR COLLOID
     Indication: DIAGNOSTIC PROCEDURE

REACTIONS (2)
  - Rash [Unknown]
  - Pruritus [Unknown]

NARRATIVE: CASE EVENT DATE: 20141009
